FAERS Safety Report 9006557 (Version 2)
Quarter: 2013Q1

REPORT INFORMATION
  Report Type: Spontaneous
  Country: US (occurrence: US)
  Receive Date: 20130110
  Receipt Date: 20130122
  Transmission Date: 20140127
  Serious: Yes (Life-Threatening, Hospitalization)
  Sender: FDA-Public Use
  Company Number: PHEH2013US000767

PATIENT
  Age: 73 Year
  Sex: Female

DRUGS (12)
  1. DIOVAN [Suspect]
     Dosage: 320 MG, QD
     Route: 048
  2. SIMVASTATIN [Suspect]
     Dosage: 20 MG, QD
     Route: 048
  3. ATENOLOL [Suspect]
     Dosage: 50 MG, QD
  4. METHIMAZOLE [Suspect]
     Dosage: 5 MG, QD
  5. METHIMAZOLE [Suspect]
     Dosage: 10 MG, QD
  6. VITAMIN D [Suspect]
     Dosage: 2000 IU, QD
  7. ZANTAC [Suspect]
     Dosage: 2 DF (150MG) DAILY
  8. LORAZEPAM [Concomitant]
     Dosage: 3 DF(1MG) QD
  9. BENZONATATE [Concomitant]
     Dosage: 3 DF(100MG), QD
  10. ONDANSETRON [Concomitant]
     Dosage: 8 MG, Q6H
  11. TRAMADOL [Concomitant]
     Dosage: 50 MG, PRN
  12. FAMOTIDINE [Concomitant]
     Dosage: 20 MG, PRN
     Route: 048

REACTIONS (3)
  - Lung neoplasm malignant [Unknown]
  - Cough [Unknown]
  - Haemoptysis [Unknown]
